FAERS Safety Report 4872226-4 (Version None)
Quarter: 2005Q4

REPORT INFORMATION
  Report Type: 
  Country: None (occurrence: None)
  Receive Date: 20051201
  Receipt Date: 20050726
  Transmission Date: 20060501
  Serious: No
  Sender: FDA-Public Use
  Company Number: 2005PV000761

PATIENT
  Age: 56 Year
  Sex: Female
  Weight: 68.4932 kg

DRUGS (8)
  1. BYETTA [Suspect]
     Indication: DIABETES MELLITUS NON-INSULIN-DEPENDENT
     Dosage: 5 MCG; BID; SC
     Route: 058
     Dates: start: 20050701
  2. GLUCOPHAGE [Concomitant]
  3. AMARYL [Concomitant]
  4. ACTOS [Concomitant]
  5. LUVOX [Concomitant]
  6. ACTONEL [Concomitant]
  7. MULTIVITAMIN [Concomitant]
  8. CALCIUM CARBONATE WITH MAGNESIUM [Concomitant]

REACTIONS (13)
  - ABDOMINAL DISTENSION [None]
  - BLOOD GLUCOSE INCREASED [None]
  - DEPRESSION [None]
  - EYE PAIN [None]
  - EYELID PTOSIS [None]
  - HEADACHE [None]
  - INSOMNIA [None]
  - MIGRAINE [None]
  - NAUSEA [None]
  - OCULAR HYPERAEMIA [None]
  - PHOTOSENSITIVITY REACTION [None]
  - STRESS [None]
  - VOMITING [None]
